FAERS Safety Report 8601150-6 (Version None)
Quarter: 2012Q3

REPORT INFORMATION
  Report Type: 
  Country: None (occurrence: None)
  Receive Date: 20120817
  Receipt Date: 20120812
  Transmission Date: 20120928
  Serious: Yes (Other)
  Sender: FDA-Public Use
  Company Number: PHHY2012MX070424

PATIENT
  Sex: Male

DRUGS (6)
  1. ESIDRIX [Concomitant]
     Dosage: UNK UKN, 1 PER DAY
     Dates: start: 20120501
  2. OMEPRAZOLE [Concomitant]
     Dosage: UNK UKN, 1 PER DAY
     Dates: start: 20111101
  3. FOLIC ACID [Concomitant]
     Dosage: UNK UKN, 1 PER DAY
     Dates: start: 20111101
  4. VITAMIN B COMPLEX CAP [Concomitant]
     Dosage: UNK UKN, 1 PER DAY
     Dates: start: 20111101
  5. EXELON [Suspect]
     Indication: DEMENTIA ALZHEIMER'S TYPE
     Dosage: 4.6 MG, 1 PATCH PER DAY
     Route: 062
     Dates: start: 20120501
  6. ENALAPRIL MALEATE [Concomitant]
     Dosage: UNK UKN, 2 PER DAY
     Dates: start: 20100801

REACTIONS (4)
  - DRUG INEFFECTIVE [None]
  - FATIGUE [None]
  - CARDIOMEGALY [None]
  - IRRITABILITY [None]
